FAERS Safety Report 8523446-9 (Version None)
Quarter: 2012Q3

REPORT INFORMATION
  Report Type: 
  Country: None (occurrence: None)
  Receive Date: 20120720
  Receipt Date: 20120712
  Transmission Date: 20120928
  Serious: Yes (Other)
  Sender: FDA-Public Use
  Company Number: CA-SP-2012-06872

PATIENT
  Age: 57 Year
  Sex: Female

DRUGS (2)
  1. TUBERSOL [Suspect]
     Indication: TUBERCULIN TEST
     Route: 023
  2. CETIRIZINE HCL [Concomitant]
     Route: 065

REACTIONS (2)
  - SKIN BURNING SENSATION [None]
  - URTICARIA [None]
